FAERS Safety Report 11265664 (Version 1)
Quarter: 2015Q3

REPORT INFORMATION
  Report Type: Spontaneous
  Country: US (occurrence: US)
  Receive Date: 20150713
  Receipt Date: 20150713
  Transmission Date: 20151125
  Serious: Yes (Other)
  Sender: FDA-Public Use
  Company Number: US-MPIJNJ-2012-07509

PATIENT
  Age: 81 Year
  Sex: Female
  Weight: 78.91 kg

DRUGS (2)
  1. VELCADE [Suspect]
     Active Substance: BORTEZOMIB
     Dosage: UNK, 1/WEEK
     Route: 058
     Dates: start: 20120917
  2. VELCADE [Suspect]
     Active Substance: BORTEZOMIB
     Indication: PLASMA CELL MYELOMA
     Dosage: UNK
     Route: 042
     Dates: start: 201203

REACTIONS (5)
  - Injection site pruritus [Not Recovered/Not Resolved]
  - Neuropathy peripheral [Recovering/Resolving]
  - Injection site reaction [Not Recovered/Not Resolved]
  - Herpes zoster [Recovered/Resolved]
  - Disease progression [Unknown]

NARRATIVE: CASE EVENT DATE: 201203
